FAERS Safety Report 12213952 (Version 1)
Quarter: 2016Q1

REPORT INFORMATION
  Report Type: Other
  Country: JP (occurrence: JP)
  Receive Date: 20160328
  Receipt Date: 20160328
  Transmission Date: 20160526
  Serious: Yes (Other)
  Sender: FDA-Public Use
  Company Number: JP-LUPIN PHARMACEUTICALS INC.-2016-01173

PATIENT
  Age: 47 Year
  Sex: Female

DRUGS (1)
  1. CEFTRIAXONE. [Suspect]
     Active Substance: CEFTRIAXONE
     Indication: DIVERTICULITIS
     Route: 065

REACTIONS (2)
  - Cholelithiasis [Recovered/Resolved]
  - Cholecystitis [Recovered/Resolved]
